FAERS Safety Report 9914577 (Version 3)
Quarter: 2014Q2

REPORT INFORMATION
  Report Type: Spontaneous
  Country: QA (occurrence: QA)
  Receive Date: 20140220
  Receipt Date: 20140430
  Transmission Date: 20141212
  Serious: Yes (Other)
  Sender: FDA-Public Use
  Company Number: QA-PFIZER INC-2014047708

PATIENT
  Sex: Male

DRUGS (5)
  1. LIPITOR [Suspect]
     Indication: PROPHYLAXIS
     Dosage: 10 MG, DAILY
     Dates: start: 2008, end: 20140201
  2. ASPIRIN [Concomitant]
     Dosage: 100 MG, ONCE EVERY 2 DAYS
     Dates: start: 2010
  3. METFORMIN [Concomitant]
     Dosage: 500 MG, 1X/DAY
     Dates: start: 2010
  4. PARIET [Concomitant]
     Dosage: UNK
     Dates: start: 2010, end: 201312
  5. PANTOZOL [Concomitant]
     Dosage: 40 MG, UNK
     Dates: start: 201312

REACTIONS (2)
  - Asphyxia [Not Recovered/Not Resolved]
  - Muscle spasms [Not Recovered/Not Resolved]
